FAERS Safety Report 24090948 (Version 4)
Quarter: 2024Q3

REPORT INFORMATION
  Report Type: Spontaneous
  Country: US (occurrence: US)
  Receive Date: 20240715
  Receipt Date: 20240926
  Transmission Date: 20241016
  Serious: Yes (Death)
  Sender: VIFOR
  Company Number: US-Vifor (International) Inc.-VIT-2024-06113

PATIENT
  Age: 63 Year
  Sex: Female
  Weight: 45.5 kg

DRUGS (3)
  1. MIRCERA [Suspect]
     Active Substance: METHOXY POLYETHYLENE GLYCOL-EPOETIN BETA
     Indication: Anaemia
     Route: 040
     Dates: start: 20240628, end: 20240628
  2. VENOFER [Suspect]
     Active Substance: IRON SUCROSE
     Indication: Nephrogenic anaemia
     Dosage: PREVIOUS EXPOSURE
     Route: 042
  3. VENOFER [Suspect]
     Active Substance: IRON SUCROSE
     Dosage: ROUTE IV PUSH, 100 MG EVERY DIALYSIS TREATMENT
     Route: 040
     Dates: start: 20240628, end: 20240628

REACTIONS (2)
  - Cardio-respiratory arrest [Fatal]
  - Pruritus [Fatal]

NARRATIVE: CASE EVENT DATE: 20240628
